FAERS Safety Report 4837480-3 (Version None)
Quarter: 2005Q4

REPORT INFORMATION
  Report Type: 
  Country: None (occurrence: None)
  Receive Date: 20051128
  Receipt Date: 20051027
  Transmission Date: 20060501
  Serious: Yes (Hospitalization)
  Sender: FDA-Public Use
  Company Number: USA0510110704

PATIENT
  Age: 55 Year
  Sex: Female

DRUGS (23)
  1. PAXIL [Suspect]
     Indication: DRUG USE FOR UNKNOWN INDICATION
     Route: 048
     Dates: end: 20050901
  2. STRATTERA [Suspect]
     Indication: DRUG USE FOR UNKNOWN INDICATION
     Route: 065
     Dates: end: 20050901
  3. HYDROCHLOROTHIAZIDE [Concomitant]
     Indication: DRUG USE FOR UNKNOWN INDICATION
     Dates: start: 20050420, end: 20050801
  4. ALFERON N [Concomitant]
     Indication: MULTIPLE SCLEROSIS
     Dosage: 5000000UNIT ALTERNATE DAYS
     Route: 058
     Dates: start: 19950101
  5. HYPERBARIC OXYGEN [Concomitant]
     Dates: start: 19810101
  6. BACLOFEN [Concomitant]
     Indication: MUSCLE SPASTICITY
     Dosage: 20MG THREE TIMES PER DAY
     Dates: start: 20040101
  7. SENNA [Concomitant]
     Indication: CONSTIPATION
  8. PROVIGIL [Concomitant]
     Dosage: 200MG IN THE MORNING
     Route: 048
     Dates: start: 20040101
  9. CLONAZEPAM [Concomitant]
     Indication: ANXIETY
     Dosage: .5MG PER DAY
     Dates: start: 20040101
  10. DETROL [Concomitant]
     Dosage: 2MG AT NIGHT
     Route: 048
     Dates: start: 20040101
  11. ATENOLOL [Concomitant]
     Indication: HYPERTENSION
     Dosage: 50MG IN THE MORNING
     Route: 048
     Dates: start: 20050401
  12. NORVASC [Concomitant]
     Indication: HYPERTENSION
     Dosage: 10MG IN THE MORNING
     Route: 048
     Dates: start: 20050601
  13. ACTONEL [Concomitant]
     Indication: OSTEOPOROSIS
     Dosage: 35MG WEEKLY
     Route: 048
     Dates: start: 20040101
  14. TUMS ULTRA [Concomitant]
     Indication: OSTEOPOROSIS
     Dosage: 1TAB TWICE PER DAY
     Route: 048
     Dates: start: 19920101
  15. EVISTA [Concomitant]
     Indication: OSTEOPOROSIS
     Dosage: 60MG IN THE MORNING
     Route: 048
     Dates: start: 20030101
  16. ASCORBIC ACID [Concomitant]
     Dosage: 600MG AT NIGHT
     Route: 048
     Dates: start: 19950101
  17. MULTI-VITAMIN [Concomitant]
     Dosage: 1TAB IN THE MORNING
     Route: 048
  18. TYLENOL EXTENDED RELEASE [Concomitant]
     Dosage: 1.3G AS REQUIRED
     Dates: start: 19950101
  19. IBUPROFEN [Concomitant]
     Dosage: 400MG AS REQUIRED
     Route: 048
     Dates: start: 19950101
  20. CLOTRIMAZOLE TROCHES [Concomitant]
     Dosage: 10MG FIVE TIMES PER DAY
     Route: 048
     Dates: start: 20050401
  21. L-GLUTAMINE [Concomitant]
     Dosage: 15G PER DAY
     Route: 048
     Dates: start: 20050601
  22. LUMIGAN [Concomitant]
     Dosage: 2DROP AT NIGHT
     Route: 047
     Dates: start: 20030101
  23. REMERON [Concomitant]
     Dosage: 15MG AT NIGHT
     Dates: start: 20050901

REACTIONS (19)
  - AGITATION [None]
  - ASTHENIA [None]
  - CONFUSIONAL STATE [None]
  - CONVULSION [None]
  - COORDINATION ABNORMAL [None]
  - DELIRIUM [None]
  - DIZZINESS [None]
  - FALL [None]
  - FATIGUE [None]
  - FLAT AFFECT [None]
  - HYPONATRAEMIA [None]
  - INAPPROPRIATE ANTIDIURETIC HORMONE SECRETION [None]
  - MICTURITION URGENCY [None]
  - NOCTURIA [None]
  - POLLAKIURIA [None]
  - PYREXIA [None]
  - URINARY TRACT INFECTION [None]
  - URINE ABNORMALITY [None]
  - URINE ODOUR ABNORMAL [None]
